FAERS Safety Report 5775369-6 (Version None)
Quarter: 2008Q2

REPORT INFORMATION
  Report Type: 
  Country: None (occurrence: None)
  Receive Date: 20080613
  Receipt Date: 20080606
  Transmission Date: 20081010
  Serious: Yes (Other)
  Sender: FDA-Public Use
  Company Number: CHPA2008US08950

PATIENT
  Age: 74 Year
  Sex: Male

DRUGS (1)
  1. MAALOX (ANTIACID/ANTIGAS MAX STR MULTI SYMPTOM (NCH) (MAGNESIUM HYDROX [Suspect]
     Dosage: ORAL
     Route: 048
     Dates: start: 20080522

REACTIONS (2)
  - FAECES DISCOLOURED [None]
  - GASTROINTESTINAL ULCER HAEMORRHAGE [None]
